FAERS Safety Report 6222017-7 (Version None)
Quarter: 2009Q2

REPORT INFORMATION
  Report Type: 
  Country: None (occurrence: None)
  Receive Date: 20090609
  Receipt Date: 20090528
  Transmission Date: 20091009
  Serious: Yes (Hospitalization, Other)
  Sender: FDA-Public Use
  Company Number: 2009AP001997

PATIENT
  Age: 75 Year
  Sex: Male

DRUGS (5)
  1. MIRTAZAPINE [Suspect]
  2. DEMECLOCYCLINE HCL [Suspect]
  3. BUSPIRONE HCL [Concomitant]
  4. BENZATROPINE [Concomitant]
  5. OXYBUTYNIN [Concomitant]

REACTIONS (8)
  - ANAEMIA [None]
  - DEHYDRATION [None]
  - DELIRIUM [None]
  - FALL [None]
  - HYPERNATRAEMIA [None]
  - HYPOTENSION [None]
  - HYPOVOLAEMIA [None]
  - INAPPROPRIATE ANTIDIURETIC HORMONE SECRETION [None]
